FAERS Safety Report 18306460 (Version 1)
Quarter: 2020Q3

REPORT INFORMATION
  Report Type: Spontaneous
  Country: US (occurrence: US)
  Receive Date: 20200923
  Receipt Date: 20200923
  Transmission Date: 20201103
  Serious: No
  Sender: FDA-Public Use
  Company Number: None

PATIENT
  Age: 80 Year
  Sex: Male
  Weight: 60.78 kg

DRUGS (2)
  1. DOFETILIDE (DOFETILIDE 250MCG CAP) [Suspect]
     Active Substance: DOFETILIDE
     Indication: ATRIAL FIBRILLATION
     Dates: start: 20200401, end: 20200402
  2. DOFETILIDE (DOFETILIDE 250MCG CAP) [Suspect]
     Active Substance: DOFETILIDE
     Indication: MITRAL VALVE REPAIR
     Dates: start: 20200401, end: 20200402

REACTIONS (4)
  - Atrial fibrillation [None]
  - Palpitations [None]
  - Electrocardiogram QT prolonged [None]
  - Treatment failure [None]

NARRATIVE: CASE EVENT DATE: 20200402
